FAERS Safety Report 10764322 (Version 1)
Quarter: 2015Q1

REPORT INFORMATION
  Report Type: Spontaneous
  Country: JP (occurrence: JP)
  Receive Date: 20150205
  Receipt Date: 20150205
  Transmission Date: 20150721
  Serious: Yes (Hospitalization, Other)
  Sender: FDA-Public Use
  Company Number: JP-AMGEN-JPNSP2015009881

PATIENT
  Sex: Female

DRUGS (5)
  1. HYPEN                              /00340101/ [Concomitant]
     Dosage: UNK
     Route: 048
  2. BREDININ [Concomitant]
     Active Substance: MIZORIBINE
     Dosage: 50 MG ONCE EVERY SECOND DAY
  3. FERROMIA [Concomitant]
     Active Substance: FERROUS CITRATE
  4. ENBREL [Suspect]
     Active Substance: ETANERCEPT
     Indication: RHEUMATOID ARTHRITIS
     Dosage: 50 MG, SINGLE
     Route: 058
     Dates: start: 201110
  5. BREDININ [Concomitant]
     Active Substance: MIZORIBINE
     Dosage: 50 MG, UNK
     Route: 048

REACTIONS (8)
  - Toothache [Recovered/Resolved]
  - Osteomyelitis [Unknown]
  - Knee deformity [Unknown]
  - Dizziness [Unknown]
  - Tooth impacted [Unknown]
  - Sleep disorder [Unknown]
  - Pain [Unknown]
  - Chronic gastritis [Unknown]

NARRATIVE: CASE EVENT DATE: 2013
